FAERS Safety Report 8808649 (Version 5)
Quarter: 2013Q3

REPORT INFORMATION
  Report Type: Spontaneous
  Country: US (occurrence: US)
  Receive Date: 20120926
  Receipt Date: 20130821
  Transmission Date: 20140515
  Serious: Yes (Other)
  Sender: FDA-Public Use
  Company Number: PHEH2012US018602

PATIENT
  Sex: Female

DRUGS (8)
  1. TEGRETOL-XR [Suspect]
     Dosage: 100 MG, QID
     Route: 048
  2. TEGRETOL-XR [Suspect]
     Dosage: 200 MG, BID
  3. TEGRETOL-XR [Suspect]
     Dosage: 200 MG, TID
     Route: 048
  4. TEGRETOL [Suspect]
     Dosage: 200 MG, BID (200 MG IN THE MORNING AND 200 MG AT NIGHT)
     Route: 048
  5. ESTROGEN [Suspect]
     Dosage: UNK UKN, UNK
  6. PROGESTERONE [Concomitant]
     Dosage: UNK UKN, UNK
  7. ESTRADIOL W/ESTRIOL [Concomitant]
     Dosage: UNK UKN, UNK
  8. ESTRONE [Concomitant]
     Dosage: UNK UKN, UNK

REACTIONS (4)
  - Convulsion [Unknown]
  - Feeling abnormal [Unknown]
  - Nonspecific reaction [Unknown]
  - Drug ineffective [Unknown]
